FAERS Safety Report 19033803 (Version 8)
Quarter: 2022Q3

REPORT INFORMATION
  Report Type: Report from Study
  Country: CH (occurrence: CH)
  Receive Date: 20210319
  Receipt Date: 20220920
  Transmission Date: 20221026
  Serious: Yes (Life-Threatening, Hospitalization, Other)
  Sender: FDA-Public Use
  Company Number: CH-IPSEN GROUP, RESEARCH AND DEVELOPMENT-2020-25227

PATIENT
  Age: 82 Year
  Sex: Male
  Weight: 96 kg

DRUGS (19)
  1. CABOZANTINIB [Suspect]
     Active Substance: CABOZANTINIB
     Indication: Metastatic renal cell carcinoma
     Dosage: 60 MG, QD
     Route: 065
     Dates: start: 20201109, end: 20201207
  2. CABOZANTINIB [Suspect]
     Active Substance: CABOZANTINIB
     Dosage: 40 MG, QD
     Route: 065
     Dates: start: 20210111, end: 20210308
  3. HYDROCORTISONE [Concomitant]
     Active Substance: HYDROCORTISONE
     Indication: Secondary adrenocortical insufficiency
     Dosage: 10 MG, BID
     Route: 048
     Dates: start: 20191115, end: 20201201
  4. HYDROCORTISONE [Concomitant]
     Active Substance: HYDROCORTISONE
     Dosage: 20 MG, BID
     Route: 048
     Dates: start: 20201202, end: 20201212
  5. HYDROCORTISONE [Concomitant]
     Active Substance: HYDROCORTISONE
     Dosage: 20 MG, BID
     Route: 048
     Dates: start: 20201217
  6. ASPIRIN [Concomitant]
     Active Substance: ASPIRIN
     Indication: Vascular disorder prophylaxis
     Dosage: 100 MG, QD
     Route: 048
     Dates: start: 20191115
  7. ATORVASTATIN [Concomitant]
     Active Substance: ATORVASTATIN
     Indication: Ischaemic stroke
     Dosage: 40 MG, QD
     Route: 048
     Dates: start: 20191114, end: 20201212
  8. ATORVASTATIN [Concomitant]
     Active Substance: ATORVASTATIN
     Dosage: 40 MG, QD
     Route: 048
     Dates: start: 20201216, end: 20210309
  9. LISINOPRIL [Concomitant]
     Active Substance: LISINOPRIL
     Indication: Hypertension
     Dosage: 2.5 MG, QD
     Route: 048
     Dates: start: 20191115, end: 20201212
  10. LISINOPRIL [Concomitant]
     Active Substance: LISINOPRIL
     Dosage: 5 MG, QD
     Route: 048
     Dates: start: 20210105
  11. ESOMEPRAZOLE [Concomitant]
     Active Substance: ESOMEPRAZOLE
     Indication: Prophylaxis
     Dosage: 20 MG, QD
     Route: 048
     Dates: start: 20191115
  12. Calcimagon D3 Forte [Concomitant]
     Indication: Hypovitaminosis
     Dosage: 500 MG, QD
     Route: 048
     Dates: start: 20200126, end: 20201212
  13. TIROSINT [Concomitant]
     Active Substance: LEVOTHYROXINE SODIUM
     Indication: Hypothyroidism
     Dosage: 50 UG, QD
     Route: 048
     Dates: start: 20200520, end: 20201212
  14. ELTROXIN LF [Concomitant]
     Indication: Hypothyroidism
     Dosage: 0.05 MG, QD
     Route: 048
     Dates: start: 20201213
  15. HYDROCORTONE [Concomitant]
     Active Substance: HYDROCORTISONE
     Indication: Secondary adrenocortical insufficiency
     Dosage: 30 MG, BID
     Route: 048
     Dates: start: 20201212, end: 20201217
  16. CALCIPARINE [Concomitant]
     Active Substance: HEPARIN CALCIUM
     Indication: Thrombosis prophylaxis
     Dosage: 5000 IU ONCE
     Route: 058
     Dates: start: 20201212, end: 20201212
  17. CALCIPARINE [Concomitant]
     Active Substance: HEPARIN CALCIUM
     Dosage: 5000 IU TWICE PER DAY
     Route: 058
     Dates: start: 20201213, end: 20201217
  18. DAFALGAN [Concomitant]
     Active Substance: ACETAMINOPHEN
     Dosage: 500 MG, ONCE
     Dates: start: 20201216, end: 20201216
  19. CALCIUM [Concomitant]
     Active Substance: CALCIUM
     Indication: Metabolic disorder prophylaxis
     Dosage: 500 MG, QD
     Route: 048
     Dates: start: 20210302

REACTIONS (7)
  - Sepsis [Recovered/Resolved]
  - Pneumonia [Recovered/Resolved]
  - Dehydration [Recovered/Resolved]
  - Diarrhoea [Recovered/Resolved]
  - Fatigue [Not Recovered/Not Resolved]
  - Enterocolitis infectious [Recovered/Resolved]
  - Hypotension [Recovered/Resolved]

NARRATIVE: CASE EVENT DATE: 20201212
